FAERS Safety Report 9938651 (Version 1)
Quarter: 2014Q1

REPORT INFORMATION
  Report Type: Spontaneous
  Country: JP (occurrence: JP)
  Receive Date: 20140303
  Receipt Date: 20140303
  Transmission Date: 20141002
  Serious: Yes (Other)
  Sender: FDA-Public Use
  Company Number: JP-JNJFOC-20140218549

PATIENT
  Sex: 0

DRUGS (3)
  1. SOVRIAD [Suspect]
     Indication: CHRONIC HEPATITIS C
     Route: 048
  2. PEGASYS [Suspect]
     Indication: CHRONIC HEPATITIS C
     Route: 058
  3. COPEGUS [Suspect]
     Indication: CHRONIC HEPATITIS C
     Route: 048

REACTIONS (1)
  - Platelet count decreased [Unknown]
